FAERS Safety Report 20921470 (Version 1)
Quarter: 2022Q2

REPORT INFORMATION
  Report Type: Spontaneous
  Country: US (occurrence: US)
  Receive Date: 20220606
  Receipt Date: 20220606
  Transmission Date: 20220720
  Serious: Yes (Hospitalization)
  Sender: FDA-Public Use
  Company Number: US-RIGEL PHARMACEUTICALS, INC.-2022FOS000061

PATIENT
  Sex: Male
  Weight: 90.703 kg

DRUGS (7)
  1. TAVALISSE [Suspect]
     Active Substance: FOSTAMATINIB
     Indication: Immune thrombocytopenia
     Dosage: 100 MG, BID
     Route: 048
     Dates: start: 20220121, end: 20220304
  2. CLONIDINE [Concomitant]
     Active Substance: CLONIDINE
     Indication: Product used for unknown indication
     Dosage: 0.1 MG, TID
     Dates: end: 20220301
  3. GLIMEPIRIDE [Concomitant]
     Active Substance: GLIMEPIRIDE
     Indication: Product used for unknown indication
     Dosage: 2 MG, BID
  4. OXYCODONE [Concomitant]
     Active Substance: OXYCODONE
     Indication: Product used for unknown indication
     Dosage: 10 MG, QID PRN
  5. PREDNISONE [Concomitant]
     Active Substance: PREDNISONE
     Indication: Product used for unknown indication
     Dosage: 5 MG, QD
  6. NPLATE [Concomitant]
     Active Substance: ROMIPLOSTIM
     Indication: Product used for unknown indication
     Dosage: UNK, WEEKLY
  7. HUMAN IMMUNOGLOBULIN G [Concomitant]
     Active Substance: HUMAN IMMUNOGLOBULIN G
     Indication: Product used for unknown indication
     Dosage: UNK, MONTHLY

REACTIONS (17)
  - Upper respiratory tract infection [Unknown]
  - Pneumonia [Unknown]
  - Hypertension [Unknown]
  - Abdominal discomfort [Unknown]
  - Chills [Unknown]
  - Cold sweat [Unknown]
  - Platelet count decreased [Unknown]
  - Epistaxis [Recovered/Resolved]
  - Stomatitis [Recovered/Resolved]
  - Petechiae [Recovered/Resolved]
  - Oxygen saturation decreased [Unknown]
  - Heart rate increased [Unknown]
  - Diarrhoea [Recovering/Resolving]
  - Dizziness [Unknown]
  - Fatigue [Unknown]
  - Blood pressure increased [Unknown]
  - Dyspnoea [Unknown]

NARRATIVE: CASE EVENT DATE: 20220101
